FAERS Safety Report 15841601 (Version 7)
Quarter: 2022Q3

REPORT INFORMATION
  Report Type: Report from Study
  Country: IL (occurrence: None)
  Receive Date: 20190118
  Receipt Date: 20220726
  Transmission Date: 20221027
  Serious: Yes (Hospitalization)
  Sender: FDA-Public Use
  Company Number: IL-ROCHE-2238757

PATIENT
  Age: 69 Year
  Sex: Female
  Weight: 56.3 kg

DRUGS (22)
  1. ATEZOLIZUMAB [Suspect]
     Active Substance: ATEZOLIZUMAB
     Indication: Ovarian cancer
     Dosage: DATE OF MOST RECENT DOSE OF BLINDED ATEZOLIZUMAB PRIOR TO SAE ONSET: 18/DEC/2018
     Route: 042
     Dates: start: 20181218
  2. PACLITAXEL [Suspect]
     Active Substance: PACLITAXEL
     Indication: Ovarian cancer
     Dosage: DATE OF MOST RECENT DOSE (280 MG) OF PACLITAXEL PRIOR TO SAE ONSET: 18/DEC/2018
     Route: 042
     Dates: start: 20181218
  3. CARBOPLATIN [Suspect]
     Active Substance: CARBOPLATIN
     Indication: Ovarian cancer
     Dosage: CARBOPLATIN AT A DOSE TO ACHIEVE A TARGET AREA UNDER THE CURVE (AUC) OF 6 (MG/ML/MIN).?DATE OF MOST
     Route: 042
     Dates: start: 20181218
  4. BROTIZOLAM [Concomitant]
     Active Substance: BROTIZOLAM
     Indication: Insomnia
     Dates: start: 20181120, end: 20200601
  5. BISOPROLOL FUMARATE [Concomitant]
     Active Substance: BISOPROLOL FUMARATE
     Indication: Supraventricular tachycardia
     Dates: start: 201806
  6. ZANTAC [Concomitant]
     Active Substance: RANITIDINE HYDROCHLORIDE
     Dates: start: 20181218, end: 20190402
  7. DEXACORT [Concomitant]
     Active Substance: DEXAMETHASONE SODIUM PHOSPHATE
     Route: 042
     Dates: start: 20181218, end: 20181218
  8. DEXACORT [Concomitant]
     Active Substance: DEXAMETHASONE SODIUM PHOSPHATE
     Route: 042
     Dates: start: 20190110, end: 20190110
  9. DEXACORT [Concomitant]
     Active Substance: DEXAMETHASONE SODIUM PHOSPHATE
     Route: 042
     Dates: start: 20190129, end: 20190129
  10. DEXACORT [Concomitant]
     Active Substance: DEXAMETHASONE SODIUM PHOSPHATE
     Route: 042
     Dates: start: 20190219, end: 20190219
  11. DEXACORT [Concomitant]
     Active Substance: DEXAMETHASONE SODIUM PHOSPHATE
     Route: 042
     Dates: start: 20190312, end: 20190312
  12. DEXACORT [Concomitant]
     Active Substance: DEXAMETHASONE SODIUM PHOSPHATE
     Route: 042
     Dates: start: 20190402, end: 20190402
  13. LORATADINE [Concomitant]
     Active Substance: LORATADINE
     Dates: start: 20181218, end: 20190402
  14. PALONOSETRON [Concomitant]
     Active Substance: PALONOSETRON
     Dates: start: 20181218, end: 20190402
  15. CALCIUM CARBONATE\VITAMIN D [Concomitant]
     Active Substance: CALCIUM CARBONATE\VITAMIN D
     Indication: Osteoarthritis
     Dates: start: 2016
  16. DERMACOMBIN [Concomitant]
     Indication: Aphthous ulcer
     Route: 061
     Dates: start: 20190121, end: 20190331
  17. GASTRO [FAMOTIDINE] [Concomitant]
     Indication: Dyspepsia
     Dates: start: 20190117, end: 20190124
  18. OMEPRAZOLE [Concomitant]
     Active Substance: OMEPRAZOLE
     Indication: Dyspepsia
     Dates: start: 20190125, end: 20190212
  19. MACRODANTIN [Concomitant]
     Active Substance: NITROFURANTOIN
     Indication: Urinary tract infection
     Dates: start: 20190210, end: 20190216
  20. AUGMENTIN [Concomitant]
     Active Substance: AMOXICILLIN\CLAVULANATE POTASSIUM
     Indication: Pyrexia
     Dates: start: 20181231, end: 20190105
  21. AMIKIN [Concomitant]
     Active Substance: AMIKACIN SULFATE
     Indication: Pyrexia
     Dates: start: 20181231, end: 20190104
  22. MIRTAZAPINE [Concomitant]
     Active Substance: MIRTAZAPINE
     Indication: Depression
     Dates: start: 20190429, end: 20191127

REACTIONS (2)
  - Systemic immune activation [Recovered/Resolved]
  - Ovarian vein thrombosis [Recovered/Resolved]

NARRATIVE: CASE EVENT DATE: 20181231
